FAERS Safety Report 6836421-7 (Version None)
Quarter: 2010Q3

REPORT INFORMATION
  Report Type: 
  Country: None (occurrence: None)
  Receive Date: 20100713
  Receipt Date: 20100705
  Transmission Date: 20110219
  Serious: Yes (Hospitalization)
  Sender: FDA-Public Use
  Company Number: GR-ABBOTT-09P-066-0614620-00

PATIENT
  Age: 65 Year
  Sex: Male
  Weight: 95.5 kg

DRUGS (16)
  1. ZEMPLAR [Suspect]
     Indication: HYPERPARATHYROIDISM SECONDARY
     Route: 042
     Dates: start: 20080617, end: 20100101
  2. ZEMPLAR [Suspect]
     Dates: start: 20100701
  3. ARANESP [Concomitant]
     Indication: ANAEMIA
     Route: 042
  4. VENOFER [Concomitant]
     Indication: ANAEMIA
     Route: 042
  5. NEUROBION [Concomitant]
     Indication: VITAMIN SUPPLEMENTATION
     Route: 042
  6. SUPERAMINE [Concomitant]
     Indication: VITAMIN SUPPLEMENTATION
     Route: 042
  7. RENVELA [Concomitant]
     Indication: HYPERPHOSPHATAEMIA
     Dosage: 3 IN AM, 4 NOON, 4 EVENING
     Route: 048
  8. FILICINE [Concomitant]
     Indication: VITAMIN SUPPLEMENTATION
     Route: 048
  9. ALLOPURINOL [Concomitant]
     Indication: HYPERURICAEMIA
     Route: 048
  10. DILATREND [Concomitant]
     Indication: HYPERTENSION
     Route: 048
  11. ZURCAZOL [Concomitant]
     Indication: PROPHYLAXIS
     Route: 048
  12. ZURCAZOL [Concomitant]
     Indication: GASTRIC DISORDER
  13. PLAVIX [Concomitant]
     Indication: DIABETIC VASCULAR DISORDER
     Route: 048
  14. LOFTYL [Concomitant]
     Indication: DIABETIC VASCULAR DISORDER
     Route: 048
  15. HUMALOG [Concomitant]
     Indication: DIABETES MELLITUS
     Dosage: 30-30
     Route: 058
  16. SALOSPIR [Concomitant]
     Indication: DIABETIC VASCULAR DISORDER
     Route: 048

REACTIONS (2)
  - ANGIOPATHY [None]
  - GANGRENE [None]
